FAERS Safety Report 4440057-5 (Version None)
Quarter: 2004Q3

REPORT INFORMATION
  Report Type: 
  Country: None (occurrence: None)
  Receive Date: 20040902
  Receipt Date: 20040819
  Transmission Date: 20050211
  Serious: Yes (Other)
  Sender: FDA-Public Use
  Company Number: CA-GLAXOSMITHKLINE-A0524383A

PATIENT
  Age: 40 Year
  Sex: Male

DRUGS (2)
  1. PAXIL [Suspect]
     Indication: DEPRESSION
     Route: 048
     Dates: start: 20040401
  2. ETHANOL [Concomitant]
     Route: 048

REACTIONS (24)
  - AGGRESSION [None]
  - AGITATION [None]
  - AMNESIA [None]
  - ANGER [None]
  - ANTISOCIAL PERSONALITY DISORDER [None]
  - DELUSION [None]
  - DEPRESSION [None]
  - DISSOCIATION [None]
  - DISTURBANCE IN ATTENTION [None]
  - DIZZINESS [None]
  - DRUG WITHDRAWAL SYNDROME [None]
  - EYE MOVEMENT DISORDER [None]
  - FEAR [None]
  - HOMICIDAL IDEATION [None]
  - HOSTILITY [None]
  - HYPERSOMNIA [None]
  - INSOMNIA [None]
  - IRRITABILITY [None]
  - MOOD SWINGS [None]
  - NIGHTMARE [None]
  - PARAESTHESIA [None]
  - POLYDIPSIA [None]
  - SCREAMING [None]
  - SUICIDAL IDEATION [None]
